FAERS Safety Report 9263821 (Version 1)
Quarter: 2013Q2

REPORT INFORMATION
  Report Type: Spontaneous
  Country: US (occurrence: None)
  Receive Date: 20130429
  Receipt Date: 20130429
  Transmission Date: 20140414
  Serious: Yes (Other)
  Sender: FDA-Public Use
  Company Number: None

PATIENT
  Age: 61 Year
  Sex: Female
  Weight: 90.7 kg

DRUGS (6)
  1. PHENYTOIN [Suspect]
     Indication: CONVULSION
     Dosage: 100MG = 2 MLS
     Route: 040
     Dates: start: 20130423, end: 20130423
  2. FOSPHENYTOIN [Suspect]
     Indication: CONVULSION
     Dosage: 1250MG = 25 MLS
     Route: 042
     Dates: start: 20130422, end: 20130422
  3. LORAZEPAM [Concomitant]
  4. LEVETIRACETAM [Concomitant]
  5. LEVOFLOXACIN [Concomitant]
  6. METRONIDAZOLE [Concomitant]

REACTIONS (11)
  - Grand mal convulsion [None]
  - Mental status changes [None]
  - Aphasia [None]
  - Aspiration [None]
  - Urinary tract infection [None]
  - Gingival hyperplasia [None]
  - Anticonvulsant drug level below therapeutic [None]
  - Bradycardia [None]
  - Infusion site extravasation [None]
  - Purple glove syndrome [None]
  - Convulsion [None]
